FAERS Safety Report 10044894 (Version 1)
Quarter: 2014Q1

REPORT INFORMATION
  Report Type: Spontaneous
  Country: BE (occurrence: None)
  Receive Date: 20140326
  Receipt Date: 20140326
  Transmission Date: 20141002
  Serious: Yes (Death, Other)
  Sender: FDA-Public Use
  Company Number: 2014HINLIT0253

PATIENT
  Age: 75 Year
  Sex: Female

DRUGS (11)
  1. LITHIUM (LITHIUM) UNKNOWN [Suspect]
     Indication: BIPOLAR DISORDER
     Dosage: 350 MG, TID, UNKNOWN
  2. MESULID (NIMESULIDE) [Suspect]
     Indication: PAIN
  3. VENLAFAXINE (EFEXOR EXEL) [Concomitant]
  4. TRAZODONE (NESTROLAN) [Concomitant]
  5. CYMBALTA [Concomitant]
  6. SIMVASTATINE (SIMVASTATIN EG) [Concomitant]
  7. METFORMINE (GLUCOPHAGE) [Concomitant]
  8. PIRACETAM (PIRACETAM EG) [Concomitant]
  9. ALPRAZOLAM (XANAX) 1MG/3X PER DAY [Concomitant]
  10. ZOPICLON (IMOVANE) [Concomitant]
  11. LORAZEPAM) TEMESTA) [Concomitant]

REACTIONS (16)
  - Acute coronary syndrome [None]
  - Cardiogenic shock [None]
  - Drug interaction [None]
  - Aphasia [None]
  - Ataxia [None]
  - Tremor [None]
  - Gait disturbance [None]
  - Antipsychotic drug level above therapeutic [None]
  - Blood thyroid stimulating hormone increased [None]
  - Fall [None]
  - Disorientation [None]
  - Confusional state [None]
  - Restlessness [None]
  - Tremor [None]
  - Blood urea increased [None]
  - Blood creatinine increased [None]
